FAERS Safety Report 12819611 (Version 1)
Quarter: 2016Q4

REPORT INFORMATION
  Report Type: Report from Study
  Country: PH (occurrence: PH)
  Receive Date: 20161006
  Receipt Date: 20161006
  Transmission Date: 20170207
  Serious: Yes (Other)
  Sender: FDA-Public Use
  Company Number: PHHY2016PH135023

PATIENT
  Sex: Female

DRUGS (1)
  1. GLIVEC [Suspect]
     Active Substance: IMATINIB MESYLATE
     Indication: GASTROINTESTINAL STROMAL TUMOUR
     Dosage: 600 MG, UNK
     Route: 065

REACTIONS (8)
  - Constipation [Recovered/Resolved]
  - Abdominal distension [Unknown]
  - Peripheral swelling [Unknown]
  - Fluid retention [Unknown]
  - Pain [Unknown]
  - Liver abscess [Unknown]
  - Movement disorder [Unknown]
  - Dyspnoea [Unknown]
